FAERS Safety Report 5222950-9 (Version None)
Quarter: 2007Q1

REPORT INFORMATION
  Report Type: 
  Country: None (occurrence: None)
  Receive Date: 20070129
  Receipt Date: 20060929
  Transmission Date: 20070707
  Serious: Yes (Hospitalization, Other)
  Sender: FDA-Public Use
  Company Number: US-PFIZER INC-2006079154

PATIENT
  Sex: Female

DRUGS (8)
  1. BEXTRA [Suspect]
     Indication: ARTHRITIS
     Route: 048
  2. LISINOPRIL [Concomitant]
     Route: 048
  3. MAXZIDE [Concomitant]
     Route: 048
  4. ULTRAM [Concomitant]
     Route: 048
  5. GLUCOPHAGE [Concomitant]
     Route: 048
  6. ZYPREXA [Concomitant]
     Route: 048
  7. RESTORIL [Concomitant]
     Route: 048
  8. POTASSIUM ACETATE [Concomitant]
     Route: 048

REACTIONS (1)
  - STEVENS-JOHNSON SYNDROME [None]
